FAERS Safety Report 7816077-7 (Version None)
Quarter: 2011Q4

REPORT INFORMATION
  Report Type: 
  Country: None (occurrence: None)
  Receive Date: 20111015
  Receipt Date: 20111005
  Transmission Date: 20120403
  Serious: Yes (Hospitalization)
  Sender: FDA-Public Use
  Company Number: FR-ASTRAZENECA-2011SE16965

PATIENT
  Age: 64 Year
  Sex: Female

DRUGS (5)
  1. NEXIUM [Suspect]
     Route: 048
     Dates: start: 20101217, end: 20110126
  2. CEFTRIAXONE [Suspect]
     Dates: start: 20101217, end: 20101217
  3. CIPROFLOXACIN [Suspect]
     Dates: start: 20101217, end: 20101226
  4. LASIX [Suspect]
     Dates: start: 20101218, end: 20101221
  5. AMOXICILLIN TRIHYDRATE [Suspect]
     Dates: start: 20101216, end: 20101216

REACTIONS (1)
  - DRUG RASH WITH EOSINOPHILIA AND SYSTEMIC SYMPTOMS [None]
